FAERS Safety Report 17338686 (Version 1)
Quarter: 2020Q1

REPORT INFORMATION
  Report Type: Spontaneous
  Country: US (occurrence: US)
  Receive Date: 20200113
  Receipt Date: 20200113
  Transmission Date: 20200409
  Serious: No
  Sender: FDA-Public Use
  Company Number: None

PATIENT
  Age: 82 Year
  Sex: Male

DRUGS (1)
  1. TEMOZOLOMIDE  CAP 250MG 1X5 [Suspect]
     Active Substance: TEMOZOLOMIDE
     Indication: BRAIN NEOPLASM MALIGNANT
     Route: 048
     Dates: start: 201911

REACTIONS (4)
  - Pneumonia [None]
  - Therapy cessation [None]
  - Cystitis [None]
  - Thrombosis [None]

NARRATIVE: CASE EVENT DATE: 20200113
